FAERS Safety Report 7530370-7 (Version None)
Quarter: 2011Q2

REPORT INFORMATION
  Report Type: 
  Country: None (occurrence: None)
  Receive Date: 20110607
  Receipt Date: 20110526
  Transmission Date: 20111010
  Serious: Yes (Hospitalization)
  Sender: FDA-Public Use
  Company Number: FR-ELI_LILLY_AND_COMPANY-FR201102005768

PATIENT
  Age: 60 Year
  Sex: Female
  Weight: 35 kg

DRUGS (4)
  1. ZOLPIDEM [Concomitant]
     Dosage: 1 DF, QD
  2. PROTHIADEN [Concomitant]
     Dosage: 25 MG, QD
  3. VALIUM [Concomitant]
     Dosage: 10 MG, BID
  4. FORTEO [Suspect]
     Indication: OSTEOPOROSIS
     Dosage: 20 UG, DAILY (1/D)
     Route: 058
     Dates: start: 20090921

REACTIONS (3)
  - FEMUR FRACTURE [None]
  - UPPER LIMB FRACTURE [None]
  - FALL [None]
